FAERS Safety Report 15601603 (Version 1)
Quarter: 2018Q4

REPORT INFORMATION
  Report Type: Spontaneous
  Country: US (occurrence: US)
  Receive Date: 20181109
  Receipt Date: 20181109
  Transmission Date: 20190205
  Serious: Yes (Other)
  Sender: FDA-Public Use
  Company Number: US-TORRENT-00007178

PATIENT
  Age: 20 Year
  Sex: Male

DRUGS (1)
  1. ZOLPIDEM [Suspect]
     Active Substance: ZOLPIDEM\ZOLPIDEM TARTRATE
     Indication: CRANIOCEREBRAL INJURY
     Dosage: 10 MG EVERY MORNING (QAM)

REACTIONS (3)
  - Apnoea [Recovered/Resolved]
  - Oxygen saturation decreased [Unknown]
  - Off label use [Unknown]
